FAERS Safety Report 9531078 (Version 1)
Quarter: 2013Q3

REPORT INFORMATION
  Report Type: Spontaneous
  Country: US (occurrence: None)
  Receive Date: 20130916
  Receipt Date: 20130916
  Transmission Date: 20140515
  Serious: Yes (Disabling)
  Sender: FDA-Public Use
  Company Number: None

PATIENT
  Age: 55 Year
  Sex: Female
  Weight: 81.65 kg

DRUGS (1)
  1. VALTREX [Suspect]
     Indication: HERPES SIMPLEX

REACTIONS (4)
  - Malaise [None]
  - Drug ineffective [None]
  - Product substitution issue [None]
  - Economic problem [None]
